FAERS Safety Report 15990705 (Version 1)
Quarter: 2019Q1

REPORT INFORMATION
  Report Type: Spontaneous
  Country: US (occurrence: US)
  Receive Date: 20190221
  Receipt Date: 20190221
  Transmission Date: 20190418
  Serious: Yes (Disabling)
  Sender: FDA-Public Use
  Company Number: None

PATIENT
  Age: 23 Year
  Sex: Male
  Weight: 53.1 kg

DRUGS (1)
  1. PROPECIA [Suspect]
     Active Substance: FINASTERIDE
     Indication: ALOPECIA
     Route: 048

REACTIONS (5)
  - Product use issue [None]
  - Emotional poverty [None]
  - Adverse food reaction [None]
  - Feeling drunk [None]
  - Disturbance in attention [None]

NARRATIVE: CASE EVENT DATE: 20171008
